FAERS Safety Report 7158332-2 (Version None)
Quarter: 2010Q4

REPORT INFORMATION
  Report Type: 
  Country: None (occurrence: None)
  Receive Date: 20101214
  Receipt Date: 20100401
  Transmission Date: 20110411
  Serious: Yes (Other)
  Sender: FDA-Public Use
  Company Number: US-PFIZER INC-2010024254

PATIENT
  Sex: Female
  Weight: 77.11 kg

DRUGS (1)
  1. ARTHROTEC [Suspect]
     Indication: ARTHRITIS
     Dosage: 75 MG, 1X/DAY
     Dates: start: 20091212, end: 20100101

REACTIONS (6)
  - DECREASED APPETITE [None]
  - DIVERTICULITIS [None]
  - FEMALE GENITAL TRACT FISTULA [None]
  - PURULENT DISCHARGE [None]
  - PYREXIA [None]
  - RECTAL DISCHARGE [None]
